FAERS Safety Report 5896421-0 (Version None)
Quarter: 2008Q3

REPORT INFORMATION
  Report Type: 
  Country: None (occurrence: None)
  Receive Date: 20080924
  Receipt Date: 20070719
  Transmission Date: 20090109
  Serious: No
  Sender: FDA-Public Use
  Company Number: US-BAYER-200711668BWH

PATIENT
  Sex: Male

DRUGS (1)
  1. AVELOX [Suspect]
     Indication: PNEUMONIA
     Route: 048
     Dates: start: 20070108, end: 20070117

REACTIONS (4)
  - AGEUSIA [None]
  - ANOSMIA [None]
  - EATING DISORDER [None]
  - WEIGHT DECREASED [None]
